FAERS Safety Report 10564604 (Version 2)
Quarter: 2014Q4

REPORT INFORMATION
  Report Type: Spontaneous
  Country: US (occurrence: US)
  Receive Date: 20141104
  Receipt Date: 20141104
  Transmission Date: 20150529
  Serious: No
  Sender: FDA-Public Use
  Company Number: US-009507513-1410USA005212

PATIENT
  Sex: Male

DRUGS (8)
  1. MIRALAX [Suspect]
     Active Substance: POLYETHYLENE GLYCOL 3350
     Indication: CONSTIPATION
  2. CRESTOR [Concomitant]
     Active Substance: ROSUVASTATIN CALCIUM
     Indication: HEART VALVE REPLACEMENT
     Dosage: UNK, UNKNOWN
  3. OCUVITE PRESERVISION [Concomitant]
     Indication: EYE DISORDER
     Dosage: UNK, UNKNOWN
  4. ASPIRIN. [Concomitant]
     Active Substance: ASPIRIN
     Indication: PRODUCT USED FOR UNKNOWN INDICATION
     Dosage: UNK, UNKNOWN
  5. MIRALAX [Suspect]
     Active Substance: POLYETHYLENE GLYCOL 3350
     Indication: FAECES HARD
     Dosage: 17 G, QD
     Route: 048
     Dates: start: 20140910
  6. AMLODIPINE [Concomitant]
     Active Substance: AMLODIPINE BESYLATE
     Indication: HEART VALVE REPLACEMENT
     Dosage: UNK, UNKNOWN
  7. GONGJINHYANG SEOL WHITENING INTENSIVE [Concomitant]
     Active Substance: DIACETYL BENZOYL LATHYROL
     Indication: HAEMOGLOBIN DECREASED
     Dosage: UNK, UNKNOWN
  8. FINASTERIDE. [Concomitant]
     Active Substance: FINASTERIDE
     Indication: PROSTATIC DISORDER
     Dosage: UNK, UNKNOWN

REACTIONS (3)
  - Drug effect increased [Unknown]
  - Incorrect drug administration duration [Unknown]
  - Product use issue [Unknown]

NARRATIVE: CASE EVENT DATE: 2014
